FAERS Safety Report 18973277 (Version 2)
Quarter: 2021Q1

REPORT INFORMATION
  Report Type: Report from Study
  Country: US (occurrence: US)
  Receive Date: 20210305
  Receipt Date: 20210325
  Transmission Date: 20210420
  Serious: Yes (Hospitalization)
  Sender: FDA-Public Use
  Company Number: US-ADAMAS PHARMA, LLC-2021ADA00422

PATIENT
  Age: 82 Year
  Sex: Female
  Weight: 49.89 kg

DRUGS (13)
  1. LEVOTHYROXINE. [Concomitant]
     Active Substance: LEVOTHYROXINE
  2. GOCOVRI [Suspect]
     Active Substance: AMANTADINE
     Indication: DYSKINESIA
     Dosage: 274 MG, 1X/DAY AT BEDTIME
     Route: 048
     Dates: start: 20200930
  3. CALCIUM [Concomitant]
     Active Substance: CALCIUM
  4. BACLOFEN. [Concomitant]
     Active Substance: BACLOFEN
     Dosage: 5 MG
     Dates: start: 202010
  5. COENZYME Q10 [Concomitant]
     Active Substance: DIETARY SUPPLEMENT\UBIDECARENONE
  6. UNSPECIFIED STOOL SOFTENER [Concomitant]
     Dosage: UNK DOSE
     Dates: end: 2021
  7. VITAMIN B12 [Concomitant]
     Active Substance: CYANOCOBALAMIN
  8. CARBIDOPA/LEVODOPA [Concomitant]
     Active Substance: CARBIDOPA\LEVODOPA
  9. VITAMIN C [Concomitant]
     Active Substance: ASCORBIC ACID
  10. UNSPECIFIED STOOL SOFTENER [Concomitant]
     Dosage: UNK INCREASED DOSE TO 3 A DAY
     Dates: start: 2021
  11. BACLOFEN. [Concomitant]
     Active Substance: BACLOFEN
     Dosage: 10 MG
     Dates: end: 202010
  12. ENTACAPONE. [Concomitant]
     Active Substance: ENTACAPONE
     Dosage: 4.5 DOSAGE UNITS, DAILY
  13. VITAMIN D3 [Concomitant]
     Active Substance: CHOLECALCIFEROL

REACTIONS (6)
  - Dehydration [Recovered/Resolved]
  - Internal fixation of fracture [Recovered/Resolved]
  - Constipation [Recovered/Resolved]
  - Hip fracture [Recovered/Resolved]
  - Product availability issue [Recovered/Resolved]
  - Osteoporosis [Unknown]

NARRATIVE: CASE EVENT DATE: 20201130
